FAERS Safety Report 8440020-3 (Version None)
Quarter: 2012Q2

REPORT INFORMATION
  Report Type: 
  Country: None (occurrence: None)
  Receive Date: 20120615
  Receipt Date: 20120606
  Transmission Date: 20120825
  Serious: Yes (Other)
  Sender: FDA-Public Use
  Company Number: CN-GENZYME-CERZ-1002506

PATIENT
  Sex: Female
  Weight: 65 kg

DRUGS (2)
  1. CEREZYME [Suspect]
     Indication: GAUCHER'S DISEASE
     Dosage: 15 U/KG, Q2W
     Route: 042
     Dates: start: 20090730, end: 20091101
  2. CEREZYME [Suspect]
     Dosage: 30 U/KG, Q2W
     Route: 042
     Dates: start: 20030701, end: 20090701

REACTIONS (5)
  - DISEASE PROGRESSION [None]
  - PAIN [None]
  - HAEMOGLOBIN DECREASED [None]
  - BONE PAIN [None]
  - OEDEMA PERIPHERAL [None]
